FAERS Safety Report 8799414 (Version 3)
Quarter: 2012Q4

REPORT INFORMATION
  Report Type: Report from Study
  Country: DE (occurrence: DE)
  Receive Date: 20120919
  Receipt Date: 20121101
  Transmission Date: 20130627
  Serious: Yes (Hospitalization)
  Sender: FDA-Public Use
  Company Number: DE-GENZYME-CAMP-1002409

PATIENT
  Age: 33 Year
  Sex: Female
  Weight: 65 kg

DRUGS (5)
  1. ALEMTUZUMAB [Suspect]
     Indication: MULTIPLE SCLEROSIS
     Dosage: 12 mg, qd
     Route: 042
     Dates: start: 20100301, end: 20100303
  2. ALEMTUZUMAB [Suspect]
     Dosage: 12 mg, qd
     Route: 042
     Dates: start: 20090227, end: 20090303
  3. CITALOPRAM [Concomitant]
     Indication: DEPRESSION
     Dosage: 20 mg, qd
     Route: 048
     Dates: start: 20080818
  4. VALETTE [Concomitant]
     Indication: CONTRACEPTION
     Dosage: 1 dose qd
     Route: 048
     Dates: start: 20111201
  5. OPIPRAMOL [Concomitant]
     Indication: RESTLESSNESS
     Dosage: 50 mg, qd
     Route: 048
     Dates: start: 20120223

REACTIONS (1)
  - Basedow^s disease [Not Recovered/Not Resolved]
